FAERS Safety Report 6496778-6 (Version None)
Quarter: 2009Q4

REPORT INFORMATION
  Report Type: 
  Country: None (occurrence: None)
  Receive Date: 20091125
  Receipt Date: 20090723
  Transmission Date: 20100525
  Serious: Yes (Hospitalization)
  Sender: FDA-Public Use
  Company Number: 2009BH011814

PATIENT
  Age: 64 Year
  Sex: Female

DRUGS (3)
  1. DIANEAL [Suspect]
     Indication: PERITONEAL DIALYSIS
     Dosage: 10 L;EVERY DAY;IP
     Route: 033
     Dates: start: 20070611
  2. MINOXIDIL [Suspect]
     Indication: HYPERTENSION
     Dates: start: 20090101, end: 20090101
  3. ATACAND [Suspect]
     Indication: HYPERTENSION
     Dosage: PO
     Route: 048
     Dates: start: 20090603, end: 20090101

REACTIONS (2)
  - HYPERTENSION [None]
  - SWELLING [None]
